FAERS Safety Report 15104639 (Version 1)
Quarter: 2018Q3

REPORT INFORMATION
  Report Type: Spontaneous
  Country: US (occurrence: US)
  Receive Date: 20180703
  Receipt Date: 20180703
  Transmission Date: 20181010
  Serious: Yes (Other)
  Sender: FDA-Public Use
  Company Number: PHHY2018US028663

PATIENT
  Sex: Male

DRUGS (2)
  1. BETAMETHASONE. [Suspect]
     Active Substance: BETAMETHASONE
     Indication: FOETAL EXPOSURE DURING PREGNANCY
     Dosage: MOTHER DOSE: 1 DOSE (DF)
     Route: 064
  2. MAGNESIUM SULFATE. [Suspect]
     Active Substance: MAGNESIUM SULFATE
     Indication: FOETAL EXPOSURE DURING PREGNANCY
     Route: 064

REACTIONS (5)
  - Pulmonary hypertension [Recovered/Resolved]
  - Foetal exposure during pregnancy [Unknown]
  - Premature baby [Unknown]
  - Tracheomalacia [Unknown]
  - Bronchomalacia [Unknown]
